FAERS Safety Report 19003627 (Version 1)
Quarter: 2021Q1

REPORT INFORMATION
  Report Type: Spontaneous
  Country: ES (occurrence: ES)
  Receive Date: 20210312
  Receipt Date: 20210312
  Transmission Date: 20210420
  Serious: Yes (Hospitalization)
  Sender: FDA-Public Use
  Company Number: ES-AUROBINDO-AUR-APL-2021-009723

PATIENT
  Sex: Male

DRUGS (1)
  1. BELINOSTAT [Suspect]
     Active Substance: BELINOSTAT
     Indication: LYMPHOMA
     Dosage: 200 MILLIGRAM, ONCE A DAY
     Route: 042
     Dates: start: 20200713, end: 20200717

REACTIONS (2)
  - Generalised oedema [Recovering/Resolving]
  - Pruritus [Recovering/Resolving]

NARRATIVE: CASE EVENT DATE: 20200717
